FAERS Safety Report 21701139 (Version 1)
Quarter: 2022Q4

REPORT INFORMATION
  Report Type: Spontaneous
  Country: US (occurrence: US)
  Receive Date: 20221208
  Receipt Date: 20221208
  Transmission Date: 20230113
  Serious: Yes (Other)
  Sender: FDA-Public Use
  Company Number: US-PFIZER INC-PV202200118226

PATIENT
  Age: 77 Year
  Sex: Female

DRUGS (6)
  1. AMIODARONE HYDROCHLORIDE [Suspect]
     Active Substance: AMIODARONE HYDROCHLORIDE
     Dosage: UNK
     Route: 042
  2. AMIODARONE HYDROCHLORIDE [Suspect]
     Active Substance: AMIODARONE HYDROCHLORIDE
     Dosage: UNK
     Route: 042
     Dates: start: 20221119
  3. HEPARIN SODIUM [Suspect]
     Active Substance: HEPARIN SODIUM
     Dosage: UNK
  4. CARDIZEM [Suspect]
     Active Substance: DILTIAZEM HYDROCHLORIDE
     Dosage: 60 MG, 4X/DAY
     Route: 048
  5. DIGOXIN [Suspect]
     Active Substance: DIGOXIN
     Dosage: 125 MG, DAILY
     Route: 048
  6. IMBRUVICA [Suspect]
     Active Substance: IBRUTINIB
     Dosage: UNK

REACTIONS (5)
  - Pericardial effusion [Unknown]
  - Mitral valve incompetence [Unknown]
  - Pulmonary hypertension [Unknown]
  - Right atrial dilatation [Unknown]
  - Left atrial dilatation [Unknown]
